FAERS Safety Report 4898650-1 (Version None)
Quarter: 2006Q1

REPORT INFORMATION
  Report Type: 
  Country: None (occurrence: None)
  Receive Date: 20060202
  Receipt Date: 20060126
  Transmission Date: 20060701
  Serious: Yes (Other)
  Sender: FDA-Public Use
  Company Number: PHBS2006JP01609

PATIENT
  Sex: Male

DRUGS (4)
  1. DIOVAN [Suspect]
     Dosage: 80 MG/DAY
     Route: 048
  2. ZYLORIC [Suspect]
     Dosage: 100 MG/DAY
     Route: 048
  3. ADALAT [Concomitant]
     Dosage: 80 MG, UNK
     Route: 048
  4. LASIX [Concomitant]
     Dosage: 40 MG, UNK
     Route: 048

REACTIONS (3)
  - DIALYSIS [None]
  - GENERALISED ERYTHEMA [None]
  - SKIN INJURY [None]
